FAERS Safety Report 23947711 (Version 2)
Quarter: 2024Q2

REPORT INFORMATION
  Report Type: Spontaneous
  Country: TR (occurrence: TR)
  Receive Date: 20240606
  Receipt Date: 20240622
  Transmission Date: 20240716
  Serious: Yes (Life-Threatening, Hospitalization)
  Sender: FDA-Public Use
  Company Number: TR-TEVA-VS-3205985

PATIENT
  Age: 34 Year
  Sex: Male

DRUGS (7)
  1. MIRTAZAPINE [Suspect]
     Active Substance: MIRTAZAPINE
     Indication: Progressive multifocal leukoencephalopathy
     Route: 048
  2. METHYLPREDNISOLONE [Suspect]
     Active Substance: METHYLPREDNISOLONE
     Indication: Progressive multifocal leukoencephalopathy
     Route: 042
  3. METHYLPREDNISOLONE [Suspect]
     Active Substance: METHYLPREDNISOLONE
     Indication: Progressive multifocal leukoencephalopathy
     Dosage: REDUCING REGIMEN
     Route: 048
  4. NATALIZUMAB [Suspect]
     Active Substance: NATALIZUMAB
     Indication: Relapsing-remitting multiple sclerosis
     Route: 042
  5. HUMAN IMMUNOGLOBULIN G [Suspect]
     Active Substance: HUMAN IMMUNOGLOBULIN G
     Indication: Progressive multifocal leukoencephalopathy
     Dosage: RECEIVED FIVE DOSES AT 0.4G/KG
     Route: 042
  6. PEMBROLIZUMAB [Suspect]
     Active Substance: PEMBROLIZUMAB
     Indication: Progressive multifocal leukoencephalopathy
     Dosage: RECEIVED FIVE INFUSIONS (200MG A DAY EVERY THREE WEEKS)
     Route: 050
  7. MARAVIROC [Concomitant]
     Active Substance: MARAVIROC
     Indication: Progressive multifocal leukoencephalopathy
     Route: 065

REACTIONS (4)
  - Progressive multifocal leukoencephalopathy [Recovered/Resolved]
  - Drug ineffective [Unknown]
  - Immune reconstitution inflammatory syndrome [Recovered/Resolved]
  - Off label use [Unknown]
